FAERS Safety Report 9054990 (Version 2)
Quarter: 2016Q4

REPORT INFORMATION
  Report Type: Report from Study
  Country: US (occurrence: US)
  Receive Date: 20130208
  Receipt Date: 20161007
  Transmission Date: 20170207
  Serious: Yes (Hospitalization, Other)
  Sender: FDA-Public Use
  Company Number: US-ROCHE-1185439

PATIENT
  Age: 51 Year
  Sex: Female
  Weight: 49.1 kg

DRUGS (7)
  1. PACLITAXEL. [Suspect]
     Active Substance: PACLITAXEL
     Indication: OVARIAN EPITHELIAL CANCER
     Dosage: LAST DOSE: 06/SEP/2012
     Route: 042
     Dates: start: 20120712
  2. CARBOPLATIN. [Suspect]
     Active Substance: CARBOPLATIN
     Indication: OVARIAN EPITHELIAL CANCER
     Dosage: LAST DOSE : 30/AUG/2012
     Route: 042
     Dates: start: 20120712
  3. BEVACIZUMAB [Suspect]
     Active Substance: BEVACIZUMAB
     Indication: OVARIAN EPITHELIAL CANCER
     Dosage: OVER 30-90 MINS ON DAY 1, LAST DOSE: 30/AUG/2012, 15 MG/KG?CYCLE 2
     Route: 042
     Dates: start: 20120810
  4. BEVACIZUMAB [Suspect]
     Active Substance: BEVACIZUMAB
     Dosage: CYCLE 3
     Route: 042
     Dates: start: 20120830
  5. PACLITAXEL. [Suspect]
     Active Substance: PACLITAXEL
     Dosage: OVER 1HR ON DAYS 1, 8 AND 15 OF CYCLE 2-6
     Route: 042
     Dates: start: 20120906
  6. CARBOPLATIN. [Suspect]
     Active Substance: CARBOPLATIN
     Dosage: CYCLES 2-6 ON DAY 2-5,
     Route: 042
     Dates: start: 20120830
  7. VELIPARIB [Suspect]
     Active Substance: VELIPARIB
     Indication: OVARIAN EPITHELIAL CANCER
     Route: 042

REACTIONS (14)
  - Hypoalbuminaemia [Not Recovered/Not Resolved]
  - Neutrophil count decreased [Not Recovered/Not Resolved]
  - Abdominal pain [Not Recovered/Not Resolved]
  - Dehydration [Unknown]
  - Fatigue [Unknown]
  - Decreased appetite [Unknown]
  - Hepatic failure [Not Recovered/Not Resolved]
  - Abdominal pain [Unknown]
  - Hyponatraemia [Not Recovered/Not Resolved]
  - Ascites [Not Recovered/Not Resolved]
  - Nausea [Not Recovered/Not Resolved]
  - Platelet count decreased [Unknown]
  - White blood cell count decreased [Unknown]
  - Vomiting [Not Recovered/Not Resolved]

NARRATIVE: CASE EVENT DATE: 20120913
